FAERS Safety Report 22815637 (Version 2)
Quarter: 2023Q4

REPORT INFORMATION
  Report Type: Spontaneous
  Country: US (occurrence: US)
  Receive Date: 20230811
  Receipt Date: 20231219
  Transmission Date: 20240110
  Serious: Yes (Other)
  Sender: FDA-Public Use
  Company Number: US-PFIZER INC-PV202300138213

PATIENT
  Age: 86 Year
  Sex: Female
  Weight: 69.297 kg

DRUGS (3)
  1. IBRANCE [Suspect]
     Active Substance: PALBOCICLIB
     Indication: Breast cancer
     Dosage: 125 MG, TAKE ONE TABLET BY MOUTH FOR DAYS 1-21 EVERY 28 DAYS
     Route: 048
     Dates: start: 20220421
  2. IBRANCE [Suspect]
     Active Substance: PALBOCICLIB
     Dosage: 100 MG, CYCLIC (TAKE 1 TABLET BY MOUTH DAILY FOR 3 WEEKS ON 1 WEEK OFF, REPEAT)
     Route: 048
  3. FASLODEX [Concomitant]
     Active Substance: FULVESTRANT
     Dosage: UNK
     Dates: start: 20220407

REACTIONS (2)
  - Cytopenia [Unknown]
  - Alopecia [Unknown]
